FAERS Safety Report 16695445 (Version 1)
Quarter: 2019Q3

REPORT INFORMATION
  Report Type: Spontaneous
  Country: PA (occurrence: PA)
  Receive Date: 20190813
  Receipt Date: 20190813
  Transmission Date: 20191004
  Serious: Yes (Death)
  Sender: FDA-Public Use
  Company Number: PA-ROCHE-2326068

PATIENT
  Sex: Male

DRUGS (27)
  1. RITUXIMAB. [Suspect]
     Active Substance: RITUXIMAB
     Dosage: 2 CYCLES OF R-DHAP
     Route: 065
     Dates: start: 20181015, end: 20181109
  2. DEXAMETHASONE. [Concomitant]
     Active Substance: DEXAMETHASONE
     Indication: DIFFUSE LARGE B-CELL LYMPHOMA
     Dosage: 2 CYCLES OF RDHAP
     Route: 065
     Dates: start: 20181015, end: 20181109
  3. MESNA. [Concomitant]
     Active Substance: MESNA
     Dosage: 2 CYCLE OF R-HYPERCVAD
     Route: 065
     Dates: start: 20190201, end: 20190503
  4. CYCLOPHOSPHAMIDE. [Concomitant]
     Active Substance: CYCLOPHOSPHAMIDE
     Dosage: 2 CYCLES OF R-CHOP
     Route: 065
     Dates: start: 20180821, end: 20180911
  5. VINCRISTINE [Concomitant]
     Active Substance: VINCRISTINE
     Dosage: 1 CYCLE OF RDAEPOCH
     Route: 065
     Dates: start: 20181212
  6. CYCLOPHOSPHAMIDE. [Concomitant]
     Active Substance: CYCLOPHOSPHAMIDE
     Dosage: 1 CYCLE OF RDAEPOCH
     Route: 065
     Dates: start: 20181212
  7. LEUCOVORIN [FOLINIC ACID] [Concomitant]
     Active Substance: LEUCOVORIN
     Dosage: 2 CYCLE OF R-HYPERCVAD
     Route: 065
     Dates: start: 20190201, end: 20190503
  8. DOXORUBICIN [Concomitant]
     Active Substance: DOXORUBICIN
     Dosage: 2 CYCLES OF R-HYPERCVAD
     Route: 065
     Dates: start: 20190201, end: 20190303
  9. CYTARABINE. [Concomitant]
     Active Substance: CYTARABINE
     Dosage: 2 CYCLES OF R-HYPERCVAD
     Route: 065
     Dates: start: 20190201, end: 20190303
  10. PREDNISONE. [Concomitant]
     Active Substance: PREDNISONE
     Dosage: 1 CYCLE OF RDAEPOCH
     Route: 065
     Dates: start: 20181212
  11. METHOTREXATE. [Concomitant]
     Active Substance: METHOTREXATE
     Dosage: 2 CYCLE OF R-HYPERCVAD
     Route: 065
     Dates: start: 20190201, end: 20190503
  12. RITUXIMAB. [Suspect]
     Active Substance: RITUXIMAB
     Indication: NON-HODGKIN^S LYMPHOMA
     Dosage: 2 CYCLES OF R-CHOP
     Route: 065
     Dates: start: 20180821, end: 20180911
  13. RITUXIMAB. [Suspect]
     Active Substance: RITUXIMAB
     Dosage: 1 CYCLE OF RDAEPOCH
     Route: 065
     Dates: start: 20181212
  14. CYCLOPHOSPHAMIDE. [Concomitant]
     Active Substance: CYCLOPHOSPHAMIDE
     Indication: DIFFUSE LARGE B-CELL LYMPHOMA
     Dosage: 2 CYCLES OF R-HYPERCVAD
     Route: 065
     Dates: start: 20190201, end: 20190303
  15. VINCRISTINE [Concomitant]
     Active Substance: VINCRISTINE
     Indication: DIFFUSE LARGE B-CELL LYMPHOMA
     Dosage: 2 CYCLES OF R-CHOP
     Route: 065
     Dates: start: 20180821, end: 20180911
  16. VINCRISTINE [Concomitant]
     Active Substance: VINCRISTINE
     Dosage: 2 CYCLES OF R-HYPERCVAD
     Route: 065
     Dates: start: 20190201, end: 20190303
  17. DEXAMETHASONE. [Concomitant]
     Active Substance: DEXAMETHASONE
     Dosage: 2 CYCLES OF R-HYPERCVAD
     Route: 065
     Dates: start: 20190201, end: 20190303
  18. CYTARABINE. [Concomitant]
     Active Substance: CYTARABINE
     Indication: DIFFUSE LARGE B-CELL LYMPHOMA
     Dosage: 2 CYCLES OF R-DHAP
     Route: 065
     Dates: start: 20181015, end: 20181109
  19. PREDNISONE. [Concomitant]
     Active Substance: PREDNISONE
     Indication: DIFFUSE LARGE B-CELL LYMPHOMA
     Dosage: 2 CYCLES OF R-CHOP
     Route: 065
     Dates: start: 20180821, end: 20180911
  20. CISPLATIN. [Concomitant]
     Active Substance: CISPLATIN
     Indication: DIFFUSE LARGE B-CELL LYMPHOMA
     Dosage: 2 CYCLES OF R-DHAP
     Route: 065
     Dates: start: 20181015, end: 20181109
  21. ETOPOSIDE. [Concomitant]
     Active Substance: ETOPOSIDE
     Indication: DIFFUSE LARGE B-CELL LYMPHOMA
     Dosage: 1 CYCLE OF R-HYPERCVAD
     Route: 065
     Dates: start: 20181212
  22. RITUXIMAB. [Suspect]
     Active Substance: RITUXIMAB
     Dosage: 2 CYCLES OF R-HYPERCVAD
     Route: 065
     Dates: start: 20190201, end: 20190303
  23. DOXORUBICIN [Concomitant]
     Active Substance: DOXORUBICIN
     Dosage: 1 CYCLE OF RDAEPOCH
     Route: 065
     Dates: start: 20181212
  24. LEUCOVORIN [FOLINIC ACID] [Concomitant]
     Active Substance: LEUCOVORIN
     Dosage: 2 CYCLE OF R-HYPERCVAD
     Route: 065
     Dates: start: 20190201, end: 20190503
  25. DOXORUBICIN [Concomitant]
     Active Substance: DOXORUBICIN
     Indication: DIFFUSE LARGE B-CELL LYMPHOMA
     Dosage: 2 CYCLES OF R-CHOP
     Route: 065
     Dates: start: 20180821, end: 20180911
  26. MESNA. [Concomitant]
     Active Substance: MESNA
     Dosage: 2 CYCLE OF R-HYPERCVAD
     Route: 065
     Dates: start: 20190201, end: 20190503
  27. METHOTREXATE. [Concomitant]
     Active Substance: METHOTREXATE
     Dosage: 2 CYCLE OF R-HYPERCVAD
     Route: 065
     Dates: start: 20190201, end: 20190503

REACTIONS (2)
  - Dysphonia [Unknown]
  - Death [Fatal]
